FAERS Safety Report 5888117-6 (Version None)
Quarter: 2008Q3

REPORT INFORMATION
  Report Type: 
  Country: None (occurrence: None)
  Receive Date: 20080916
  Receipt Date: 20080916
  Transmission Date: 20090109
  Serious: No
  Sender: FDA-Public Use
  Company Number: None

PATIENT
  Sex: Female
  Weight: 77.1115 kg

DRUGS (1)
  1. ACTONEL [Suspect]
     Indication: OSTEOPENIA
     Dosage: 35 MG ONCE A WEEK PO
     Route: 048
     Dates: start: 20070901, end: 20080911

REACTIONS (3)
  - BACK PAIN [None]
  - ILL-DEFINED DISORDER [None]
  - WALKING AID USER [None]
